FAERS Safety Report 22167339 (Version 1)
Quarter: 2023Q2

REPORT INFORMATION
  Report Type: Spontaneous
  Country: US (occurrence: US)
  Receive Date: 20230403
  Receipt Date: 20230403
  Transmission Date: 20230721
  Serious: No
  Sender: FDA-Public Use
  Company Number: US-SA-SAC20230328000420

PATIENT
  Age: 40 Year
  Sex: Female
  Weight: 74 kg

DRUGS (6)
  1. DUPIXENT [Suspect]
     Active Substance: DUPILUMAB
     Indication: Dermatitis atopic
     Dosage: 300 MG, QOW
     Route: 058
     Dates: start: 2023
  2. ADVIL [Concomitant]
     Active Substance: IBUPROFEN
     Dosage: UNK
  3. LILETTA [Concomitant]
     Active Substance: LEVONORGESTREL
     Dosage: UNK
  4. TRETINOIN [Concomitant]
     Active Substance: TRETINOIN
     Dosage: UNK
  5. TRIAMCINOLONE ACETONIDE [Concomitant]
     Active Substance: TRIAMCINOLONE ACETONIDE
     Dosage: UNK
  6. ZYRTEC [Concomitant]
     Active Substance: CETIRIZINE HYDROCHLORIDE
     Dosage: UNK

REACTIONS (7)
  - Initial insomnia [Unknown]
  - Dermatitis atopic [Unknown]
  - Therapeutic product effect decreased [Unknown]
  - Pruritus [Unknown]
  - Skin fissures [Unknown]
  - Skin exfoliation [Unknown]
  - Dry skin [Unknown]

NARRATIVE: CASE EVENT DATE: 20230101
